FAERS Safety Report 6122681-7 (Version None)
Quarter: 2009Q1

REPORT INFORMATION
  Report Type: 
  Country: None (occurrence: None)
  Receive Date: 20090318
  Receipt Date: 20090311
  Transmission Date: 20090719
  Serious: Yes (Hospitalization)
  Sender: FDA-Public Use
  Company Number: SE-SANOFI-SYNTHELABO-F01200900243

PATIENT

DRUGS (3)
  1. CAPECITABINE [Suspect]
     Dosage: BID
     Route: 065
     Dates: start: 20081219
  2. ELOXATIN [Suspect]
     Indication: COLORECTAL CANCER METASTATIC
     Route: 065
     Dates: start: 20081219, end: 20081219
  3. BEVACIZUMAB [Suspect]
     Route: 065
     Dates: start: 20081219, end: 20081219

REACTIONS (2)
  - PERICARDITIS [None]
  - VOMITING [None]
